FAERS Safety Report 4868198-9 (Version None)
Quarter: 2005Q4

REPORT INFORMATION
  Report Type: 
  Country: None (occurrence: None)
  Receive Date: 20051227
  Receipt Date: 20051219
  Transmission Date: 20060501
  Serious: Yes (Hospitalization, Other)
  Sender: FDA-Public Use
  Company Number: HQWYE728529NOV05

PATIENT
  Age: 49 Year
  Sex: Female

DRUGS (11)
  1. CYCLOSPORINE [Suspect]
     Indication: PROPHYLAXIS AGAINST TRANSPLANT REJECTION
     Dosage: SEE IMAGE
     Dates: start: 20050512, end: 20051011
  2. CYCLOSPORINE [Suspect]
     Indication: PROPHYLAXIS AGAINST TRANSPLANT REJECTION
     Dosage: SEE IMAGE
     Dates: start: 20051012, end: 20051019
  3. BACTRIM [Concomitant]
  4. NIFEREX (POLYSACCHARIDE-IRON COMPLEX) [Concomitant]
  5. ADALAT [Concomitant]
  6. LOSARTAN POTASSIUM [Concomitant]
  7. METOPROLOL SUCCINATE [Concomitant]
  8. LASIX [Concomitant]
  9. LIPITOR [Concomitant]
  10. CELLCEPT [Concomitant]
  11. PREDNISONE [Concomitant]

REACTIONS (5)
  - BIOPSY KIDNEY ABNORMAL [None]
  - BLOOD CREATININE INCREASED [None]
  - KIDNEY FIBROSIS [None]
  - KIDNEY TRANSPLANT REJECTION [None]
  - RENAL TUBULAR ATROPHY [None]
